FAERS Safety Report 8385531 (Version 2)
Quarter: 2015Q1

REPORT INFORMATION
  Report Type: Report from Study
  Country: US (occurrence: US)
  Receive Date: 20120202
  Receipt Date: 20150226
  Transmission Date: 20150721
  Serious: Yes (Death)
  Sender: FDA-Public Use
  Company Number: US-ROCHE-1035846

PATIENT
  Sex: Female

DRUGS (22)
  1. AVASTIN [Suspect]
     Active Substance: BEVACIZUMAB
     Indication: COLON CANCER
     Route: 042
     Dates: start: 20070104
  2. AVASTIN [Suspect]
     Active Substance: BEVACIZUMAB
     Indication: METASTASIS
     Route: 042
  3. CAMPTOSAR [Concomitant]
     Active Substance: IRINOTECAN HYDROCHLORIDE
     Route: 042
  4. OXALIPLATIN. [Concomitant]
     Active Substance: OXALIPLATIN
  5. ALOXI [Concomitant]
     Active Substance: PALONOSETRON HYDROCHLORIDE
     Route: 042
  6. COUMADIN (UNITED STATES) [Concomitant]
     Route: 048
  7. FENTANYL. [Concomitant]
     Active Substance: FENTANYL
     Indication: PAIN
     Dosage: 100 MCG/HR
     Route: 065
     Dates: start: 20070706
  8. XELODA [Suspect]
     Active Substance: CAPECITABINE
     Indication: METASTASIS
  9. XELODA [Suspect]
     Active Substance: CAPECITABINE
     Indication: COLON CANCER
     Route: 048
     Dates: start: 20070419
  10. ANZEMET [Concomitant]
     Active Substance: DOLASETRON MESYLATE
     Route: 042
  11. 5-FLUOROURACIL [Concomitant]
     Active Substance: FLUOROURACIL
  12. CALMOSEPTINE (UNITED STATES) [Concomitant]
     Dosage: 16 OZ AS DIRECTED
     Route: 065
  13. LEXAPRO [Concomitant]
     Active Substance: ESCITALOPRAM OXALATE
     Route: 048
  14. VECTIBIX [Concomitant]
     Active Substance: PANITUMUMAB
     Route: 042
  15. LEUCOVORIN [Concomitant]
     Active Substance: LEUCOVORIN
  16. DURAGESIC [Concomitant]
     Active Substance: FENTANYL
     Indication: PAIN
     Dosage: 50 MCG/HR
     Route: 065
  17. LYRICA [Concomitant]
     Active Substance: PREGABALIN
     Route: 048
  18. URECHOLINE [Concomitant]
     Active Substance: BETHANECHOL CHLORIDE
     Route: 048
  19. AVASTIN [Suspect]
     Active Substance: BEVACIZUMAB
     Route: 042
  20. DECADRON [Concomitant]
     Active Substance: DEXAMETHASONE
     Route: 042
  21. ATIVAN [Concomitant]
     Active Substance: LORAZEPAM
     Indication: MUSCLE SPASMS
     Route: 048
  22. PRILOSEC [Concomitant]
     Active Substance: OMEPRAZOLE MAGNESIUM
     Route: 048

REACTIONS (13)
  - Abdominal pain [Unknown]
  - Thrombophlebitis [Unknown]
  - Death [Fatal]
  - Disease progression [Unknown]
  - Neutropenia [Unknown]
  - Lower gastrointestinal haemorrhage [Unknown]
  - Nausea [Recovered/Resolved]
  - Dehydration [Unknown]
  - Hypophagia [Unknown]
  - Abdominal pain upper [Unknown]
  - Coagulopathy [Unknown]
  - Proctalgia [Unknown]
  - Emotional disorder [Unknown]
